FAERS Safety Report 5925855-0 (Version None)
Quarter: 2008Q4

REPORT INFORMATION
  Report Type: 
  Country: None (occurrence: None)
  Receive Date: 20081021
  Receipt Date: 20081013
  Transmission Date: 20090506
  Serious: Yes (Death, Hospitalization, Other)
  Sender: FDA-Public Use
  Company Number: PHHO2008DE10925

PATIENT
  Sex: Male

DRUGS (4)
  1. RAD 666 RAD+TAB+PTR [Suspect]
     Indication: HEART TRANSPLANT
     Dosage: UNK
     Dates: start: 20080514, end: 20080617
  2. CYCLOSPORINE [Suspect]
  3. DECORTIN [Suspect]
     Indication: HEART TRANSPLANT
  4. MYCOPHENOLATE MOFETIL [Suspect]

REACTIONS (7)
  - ASPERGILLOSIS [None]
  - CARDIAC DISORDER [None]
  - CONCOMITANT DISEASE PROGRESSION [None]
  - INFECTION [None]
  - MULTI-ORGAN FAILURE [None]
  - SEPTIC SHOCK [None]
  - WOUND INFECTION [None]
